FAERS Safety Report 4951514-7 (Version None)
Quarter: 2006Q1

REPORT INFORMATION
  Report Type: 
  Country: None (occurrence: None)
  Receive Date: 20060323
  Receipt Date: 20060310
  Transmission Date: 20060701
  Serious: Yes (Hospitalization)
  Sender: FDA-Public Use
  Company Number: PHEH2006US03282

PATIENT
  Age: 59 Year
  Sex: Female

DRUGS (9)
  1. ZOLOFT [Concomitant]
  2. OXYCONTIN [Concomitant]
  3. FLUOROURACIL [Concomitant]
  4. ADRIAMYCIN PFS [Concomitant]
     Indication: BREAST CANCER
  5. TAMOXIFEN CITRATE [Concomitant]
     Indication: BREAST CANCER
  6. AROMASIN [Concomitant]
     Indication: BREAST CANCER
  7. ARIMIDEX [Concomitant]
     Indication: BREAST CANCER
  8. AVASTIN [Concomitant]
     Indication: BREAST CANCER
  9. ZOMETA [Suspect]
     Indication: BREAST CANCER METASTATIC
     Dosage: 4 MG EVERY MONTH
     Dates: start: 20020101, end: 20050622

REACTIONS (3)
  - OSTEONECROSIS [None]
  - PAIN IN JAW [None]
  - STAPHYLOCOCCAL INFECTION [None]
